FAERS Safety Report 15075622 (Version 2)
Quarter: 2019Q2

REPORT INFORMATION
  Report Type: Spontaneous
  Country: US (occurrence: US)
  Receive Date: 20180627
  Receipt Date: 20190515
  Transmission Date: 20190711
  Serious: No
  Sender: FDA-Public Use
  Company Number: US-SA-2018SA166048

PATIENT
  Sex: Female

DRUGS (3)
  1. CHOLESTYRAMINE. [Concomitant]
     Active Substance: CHOLESTYRAMINE
  2. PREDNISONE. [Concomitant]
     Active Substance: PREDNISONE
  3. AUBAGIO [Suspect]
     Active Substance: TERIFLUNOMIDE

REACTIONS (4)
  - Fatigue [Unknown]
  - Headache [Unknown]
  - Pain [Unknown]
  - Rash [Unknown]
